FAERS Safety Report 9115767 (Version 1)
Quarter: 2013Q1

REPORT INFORMATION
  Report Type: Spontaneous
  Country: US (occurrence: None)
  Receive Date: 20130221
  Receipt Date: 20130221
  Transmission Date: 20140127
  Serious: Yes (Hospitalization)
  Sender: FDA-Public Use
  Company Number: None

PATIENT
  Age: 60 Year
  Sex: Male
  Weight: 89.8 kg

DRUGS (1)
  1. CYTARABINE 2G/20ML APP [Suspect]
     Indication: MYELOID LEUKAEMIA
     Dosage: 210 MG  DAILY X7  CONTINUOUS IV INFUSION OVER 24HR
     Route: 041
     Dates: start: 20121027, end: 20121102

REACTIONS (3)
  - Rash erythematous [None]
  - No therapeutic response [None]
  - Hidradenitis [None]
